FAERS Safety Report 16371863 (Version 1)
Quarter: 2019Q2

REPORT INFORMATION
  Report Type: Spontaneous
  Country: FR (occurrence: FR)
  Receive Date: 20190530
  Receipt Date: 20190530
  Transmission Date: 20190711
  Serious: Yes (Hospitalization)
  Sender: FDA-Public Use
  Company Number: FR-PFIZER INC-2019222027

PATIENT
  Age: 30 Year
  Sex: Female

DRUGS (6)
  1. NOZINAN [LEVOMEPROMAZINE HYDROCHLORIDE] [Suspect]
     Active Substance: LEVOMEPROMAZINE HYDROCHLORIDE
     Dosage: 20 DF, SINGLE
     Route: 048
     Dates: start: 20190412, end: 20190412
  2. IZALGI [Suspect]
     Active Substance: ACETAMINOPHEN\OPIUM
     Dosage: UNK
     Route: 048
     Dates: start: 20190412, end: 20190412
  3. PREGABALIN. [Suspect]
     Active Substance: PREGABALIN
     Dosage: 24 DF, SINGLE
     Route: 048
     Dates: start: 20190412, end: 20190412
  4. CODOLIPRANE [Suspect]
     Active Substance: ACETAMINOPHEN\CODEINE PHOSPHATE
     Dosage: UNK
     Route: 048
     Dates: start: 20190412, end: 20190412
  5. CANNABIS [Suspect]
     Active Substance: CANNABIS SATIVA SUBSP. INDICA TOP
     Dosage: UNK
     Route: 065
  6. KLIPAL CODEINE [Suspect]
     Active Substance: ACETAMINOPHEN\CODEINE PHOSPHATE
     Dosage: UNK
     Route: 048
     Dates: start: 20190412, end: 20190412

REACTIONS (2)
  - Depressed level of consciousness [Recovered/Resolved]
  - Poisoning deliberate [Recovered/Resolved]

NARRATIVE: CASE EVENT DATE: 20190412
